FAERS Safety Report 8186117-7 (Version None)
Quarter: 2012Q1

REPORT INFORMATION
  Report Type: 
  Country: None (occurrence: None)
  Receive Date: 20120301
  Receipt Date: 20120215
  Transmission Date: 20120608
  Serious: Yes (Hospitalization)
  Sender: FDA-Public Use
  Company Number: DAV-AE-MTX-12-01

PATIENT
  Age: 68 Year
  Sex: Female
  Weight: 61.6892 kg

DRUGS (10)
  1. HYDROCHLOROTHIAZIDE [Concomitant]
  2. HUMIRA [Concomitant]
  3. OLOPATADINE HCL [Concomitant]
  4. METHOTREXATE [Suspect]
     Indication: RHEUMATOID ARTHRITIS
     Dosage: ORAL
     Route: 048
     Dates: start: 20110902, end: 20111128
  5. IBUPROFEN [Concomitant]
  6. LEUCOVORIN CALCIUM [Concomitant]
  7. LEVOTHYROXINE SODIUM [Concomitant]
  8. CLONAZEPAM [Concomitant]
  9. ALBUTEROL SULFATE AUTOHALER [Concomitant]
  10. CITALOPRAM HYDROBROMIDE [Concomitant]

REACTIONS (1)
  - CELLULITIS [None]
